FAERS Safety Report 8689890 (Version 2)
Quarter: 2013Q4

REPORT INFORMATION
  Report Type: Spontaneous
  Country: US (occurrence: US)
  Receive Date: 20120727
  Receipt Date: 20131031
  Transmission Date: 20140711
  Serious: Yes (Other)
  Sender: FDA-Public Use
  Company Number: US-009507513-1207USA010204

PATIENT
  Age: 65 Year
  Sex: Male

DRUGS (6)
  1. JANUVIA [Suspect]
     Route: 048
  2. METFORMIN [Suspect]
  3. GARLIC [Suspect]
  4. AMARYL [Suspect]
  5. ALTACE [Suspect]
  6. INSULIN GLARGINE [Suspect]
     Dosage: 10 DF, HS

REACTIONS (6)
  - Oedema peripheral [Unknown]
  - Swelling [Unknown]
  - Lip swelling [Unknown]
  - Weight decreased [Unknown]
  - Pruritus [Unknown]
  - Rash [Unknown]
